FAERS Safety Report 9284174 (Version 4)
Quarter: 2015Q2

REPORT INFORMATION
  Report Type: Spontaneous
  Country: JP (occurrence: None)
  Receive Date: 20130502
  Receipt Date: 20150623
  Transmission Date: 20150821
  Serious: Yes (Disabling, Other)
  Sender: FDA-Public Use
  Company Number: 1304-562

PATIENT
  Age: 94 Year
  Sex: Male

DRUGS (1)
  1. EYLEA [Suspect]
     Active Substance: AFLIBERCEPT
     Indication: AGE-RELATED MACULAR DEGENERATION
     Route: 031
     Dates: start: 20121220, end: 20121220

REACTIONS (3)
  - Macular hole [None]
  - Retinal pigment epithelial tear [None]
  - Subretinal fibrosis [None]

NARRATIVE: CASE EVENT DATE: 20130124
